FAERS Safety Report 7904775-6 (Version None)
Quarter: 2011Q4

REPORT INFORMATION
  Report Type: 
  Country: None (occurrence: None)
  Receive Date: 20111109
  Receipt Date: 20111031
  Transmission Date: 20120403
  Serious: Yes (Hospitalization, Other)
  Sender: FDA-Public Use
  Company Number: US-BAYER-2011-048186

PATIENT
  Age: 21 Year
  Sex: Female
  Weight: 70.295 kg

DRUGS (10)
  1. SOMA [Concomitant]
     Indication: TEMPOROMANDIBULAR JOINT SYNDROME
     Dosage: UNK
     Dates: start: 20080101, end: 20100101
  2. VALIUM [Concomitant]
     Indication: TEMPOROMANDIBULAR JOINT SYNDROME
     Dosage: UNK
     Dates: start: 20080101, end: 20100101
  3. IBUPROFEN [Concomitant]
  4. ACETAMINOPHEN [Concomitant]
  5. YAZ [Suspect]
     Dosage: UNK
     Dates: start: 20090101
  6. IBUPROFEN (ADVIL) [Concomitant]
  7. TOPAMAX [Concomitant]
     Indication: MIGRAINE
     Dosage: UNK
     Dates: start: 20090101
  8. ASCORBIC ACID [Concomitant]
  9. PROZAC [Concomitant]
     Indication: DEPRESSION
     Dosage: UNK
     Dates: start: 20081001, end: 20091101
  10. AMOXICILLIN [Concomitant]

REACTIONS (3)
  - GALLBLADDER DISORDER [None]
  - CHOLECYSTITIS CHRONIC [None]
  - PAIN [None]
